FAERS Safety Report 23887013 (Version 2)
Quarter: 2024Q2

REPORT INFORMATION
  Report Type: Spontaneous
  Country: EG (occurrence: EG)
  Receive Date: 20240523
  Receipt Date: 20240609
  Transmission Date: 20240716
  Serious: Yes (Hospitalization, Disabling, Other)
  Sender: FDA-Public Use
  Company Number: EG-NOVOPROD-1223149

PATIENT
  Age: 681 Month
  Sex: Female
  Weight: 50 kg

DRUGS (4)
  1. SELENIUM ACE [ASCORBIC ACID;BETACAROTENE;RETINOL;SELENIUM;TOCOPHEROL] [Concomitant]
     Indication: Platelet count decreased
     Dosage: UNK, ONCE DAILY
     Route: 048
  2. TRESIBA [Suspect]
     Active Substance: INSULIN DEGLUDEC
     Indication: Diabetes mellitus
     Dosage: 13 IU, QD (MORNING)
     Route: 058
  3. LIVAGOAL [Concomitant]
     Indication: Liver disorder
     Dosage: 225 MG, BID (1-TAB 225MG MORNING AND 1 TAB NIGHT 225 MG )
     Route: 048
  4. LIVAGOAL [Concomitant]
     Dosage: 450 MG, QD (NIGHT)
     Route: 048

REACTIONS (2)
  - Femur fracture [Not Recovered/Not Resolved]
  - Fall [Not Recovered/Not Resolved]

NARRATIVE: CASE EVENT DATE: 20230708
